FAERS Safety Report 8182120-1 (Version None)
Quarter: 2012Q1

REPORT INFORMATION
  Report Type: 
  Country: None (occurrence: None)
  Receive Date: 20120302
  Receipt Date: 20120223
  Transmission Date: 20120608
  Serious: Yes (Other)
  Sender: FDA-Public Use
  Company Number: US-ASTRAZENECA-2012SE12660

PATIENT
  Age: 73 Year
  Sex: Male
  Weight: 79.4 kg

DRUGS (4)
  1. NEXIUM [Concomitant]
     Indication: GASTROOESOPHAGEAL REFLUX DISEASE
  2. NORVASC [Concomitant]
     Indication: CARDIAC DISORDER
  3. CRESTOR [Suspect]
     Indication: BLOOD CHOLESTEROL INCREASED
     Route: 048
  4. LANTUS [Concomitant]
     Indication: DIABETES MELLITUS

REACTIONS (1)
  - NEUROPATHY PERIPHERAL [None]
